FAERS Safety Report 9290151 (Version 5)
Quarter: 2013Q3

REPORT INFORMATION
  Report Type: Spontaneous
  Country: IT (occurrence: IT)
  Receive Date: 20130515
  Receipt Date: 20130906
  Transmission Date: 20140515
  Serious: Yes (Death, Other)
  Sender: FDA-Public Use
  Company Number: PHHY2013IT047431

PATIENT
  Age: 37 Year
  Sex: Male

DRUGS (5)
  1. GILENYA [Suspect]
     Indication: RELAPSING-REMITTING MULTIPLE SCLEROSIS
     Dosage: 0.5 MG, QD
     Route: 048
     Dates: start: 20130117
  2. CYMBALTA [Concomitant]
     Dosage: 60 MG, QD
     Dates: start: 201203
  3. LYRICA [Concomitant]
     Indication: NEURALGIA
     Dosage: 225 MG, UNK
     Dates: start: 20100611
  4. LYRICA [Concomitant]
     Dosage: 375 MG, DAILY
  5. DULOXETINE [Concomitant]
     Indication: DEPRESSION
     Dosage: 60 MG, DAILY
     Route: 048
     Dates: start: 20120316

REACTIONS (6)
  - Completed suicide [Fatal]
  - Panic attack [Unknown]
  - Dyspnoea [Unknown]
  - Tachycardia [Unknown]
  - Dizziness [Unknown]
  - Palpitations [Unknown]
